FAERS Safety Report 19985170 (Version 2)
Quarter: 2022Q1

REPORT INFORMATION
  Report Type: Report from Study
  Country: KR (occurrence: None)
  Receive Date: 20211022
  Receipt Date: 20220325
  Transmission Date: 20220424
  Serious: Yes (Hospitalization)
  Sender: FDA-Public Use
  Company Number: KR-EISAI MEDICAL RESEARCH-EC-2021-101622

PATIENT
  Age: 68 Year
  Sex: Female
  Weight: 59.3 kg

DRUGS (9)
  1. LENVIMA [Suspect]
     Active Substance: LENVATINIB
     Indication: Uterine cancer
     Route: 048
     Dates: start: 20210811, end: 20211104
  2. PEMBROLIZUMAB [Suspect]
     Active Substance: PEMBROLIZUMAB
     Indication: Uterine cancer
     Route: 042
     Dates: start: 20210811, end: 20210927
  3. MICATERE PLUS [Concomitant]
     Indication: Hypertension
     Dosage: 80/12.5 MG
     Route: 048
     Dates: start: 20200316
  4. HYUNDAI TENORMIN [Concomitant]
     Indication: Hypertension
     Route: 048
     Dates: start: 20210910
  5. ALMAGEL F [Concomitant]
     Indication: Chronic gastritis
     Dosage: 4 PACK
     Route: 048
     Dates: start: 20210401
  6. PIRENOXINE [Concomitant]
     Active Substance: PIRENOXINE
     Indication: Retinal disorder
     Route: 031
     Dates: start: 20210525
  7. DIMETHICONE\PANCRELIPASE\URSODIOL [Concomitant]
     Active Substance: DIMETHICONE\PANCRELIPASE\URSODIOL
     Indication: Chronic gastritis
     Route: 048
     Dates: start: 20210602
  8. MAGMIL S [Concomitant]
     Indication: Chronic gastritis
     Route: 048
     Dates: start: 20210621
  9. KYONGBO CEFTRIAXONE SODIUM [Concomitant]
     Indication: Prophylaxis
     Dosage: 1 VIAL - 2G
     Route: 042
     Dates: start: 20210812, end: 20210816

REACTIONS (1)
  - Urinary tract infection [Recovered/Resolved]

NARRATIVE: CASE EVENT DATE: 20210910
